FAERS Safety Report 25803838 (Version 1)
Quarter: 2025Q3

REPORT INFORMATION
  Report Type: Spontaneous
  Country: EU (occurrence: EU)
  Receive Date: 20250915
  Receipt Date: 20250915
  Transmission Date: 20251020
  Serious: Yes (Hospitalization)
  Sender: PFIZER
  Company Number: None

PATIENT
  Age: 81 Year
  Sex: Male
  Weight: 76 kg

DRUGS (8)
  1. BRAFTOVI [Suspect]
     Active Substance: ENCORAFENIB
     Indication: Acral lentiginous melanoma
     Dosage: 6 DF, 1X/DAY
     Route: 048
     Dates: start: 20241031, end: 20250131
  2. MEKTOVI [Suspect]
     Active Substance: BINIMETINIB
     Indication: Acral lentiginous melanoma
     Dosage: 6 DF, 1X/DAY
     Route: 048
     Dates: start: 20241031, end: 20250131
  3. YERVOY [Suspect]
     Active Substance: IPILIMUMAB
     Indication: Acral lentiginous melanoma
     Route: 042
     Dates: start: 20250122, end: 20250122
  4. OPDIVO [Suspect]
     Active Substance: NIVOLUMAB
     Indication: Acral lentiginous melanoma
     Route: 042
     Dates: start: 20250122, end: 20250122
  5. METFORMIN HYDROCHLORIDE [Concomitant]
     Active Substance: METFORMIN HYDROCHLORIDE
     Dosage: 1000 MG, 1X/DAY
     Route: 048
  6. FENOFIBRATE [Concomitant]
     Active Substance: FENOFIBRATE
     Dosage: 1 DF, 1X/DAY
     Route: 048
  7. ROSUVASTATIN [Concomitant]
     Active Substance: ROSUVASTATIN
     Dosage: 20 MG, 1X/DAY
     Route: 048
  8. VALPROIC ACID [Concomitant]
     Active Substance: VALPROIC ACID
     Dosage: 1000 MG, 1X/DAY
     Route: 048

REACTIONS (1)
  - Haemophagocytic lymphohistiocytosis [Recovering/Resolving]

NARRATIVE: CASE EVENT DATE: 20250124
